FAERS Safety Report 25214622 (Version 1)
Quarter: 2025Q2

REPORT INFORMATION
  Report Type: Other
  Country: US (occurrence: US)
  Receive Date: 20250418
  Receipt Date: 20250418
  Transmission Date: 20250716
  Serious: Yes (Other)
  Sender: EMD SERONO INC
  Company Number: US-Merck Healthcare KGaA-2025019332

PATIENT
  Age: 68 Year
  Sex: Male

DRUGS (1)
  1. TEPOTINIB [Suspect]
     Active Substance: TEPOTINIB
     Indication: Non-small cell lung cancer metastatic
     Dosage: 450 MG ACTIVE MOIETY
     Dates: start: 202210

REACTIONS (2)
  - Chronic kidney disease [Unknown]
  - Oedema [Unknown]
